FAERS Safety Report 8759352 (Version 1)
Quarter: 2012Q4

REPORT INFORMATION
  Report Type: 
  Country: CH (occurrence: CH)
  Receive Date: 20120829
  Receipt Date: 20120829
  Transmission Date: 20130627
  Serious: Yes (Hospitalization)
  Sender: FDA-Public Use
  Company Number: CH-SANOFI-AVENTIS-2012SA062113

PATIENT
  Age: 76 Year
  Sex: Female

DRUGS (3)
  1. ARAVA [Suspect]
     Indication: RHEUMATOID ARTHRITIS
     Route: 065
     Dates: start: 20060120, end: 20120401
  2. ARAVA [Suspect]
     Indication: RHEUMATOID ARTHRITIS
     Route: 065
  3. HUMIRA [Suspect]
     Indication: DRUG USE FOR UNKNOWN INDICATION
     Route: 065

REACTIONS (15)
  - Chronic obstructive pulmonary disease [Unknown]
  - Cough [Unknown]
  - Upper gastrointestinal haemorrhage [Unknown]
  - Normochromic normocytic anaemia [Unknown]
  - Vulvovaginal mycotic infection [Unknown]
  - Sepsis [Unknown]
  - Pyrexia [Unknown]
  - Tachycardia [Unknown]
  - Oxygen saturation decreased [Unknown]
  - Cardiac failure [Unknown]
  - Atrial fibrillation [Unknown]
  - Renal failure chronic [Unknown]
  - Dysuria [Unknown]
  - Bronchitis [Recovering/Resolving]
  - Urinary tract infection [Unknown]
